FAERS Safety Report 24136271 (Version 1)
Quarter: 2024Q3

REPORT INFORMATION
  Report Type: Spontaneous
  Country: US (occurrence: None)
  Receive Date: 20240724
  Receipt Date: 20240724
  Transmission Date: 20241017
  Serious: Yes (Disabling, Other)
  Sender: Public
  Company Number: None

PATIENT
  Age: 74 Year
  Sex: Female
  Weight: 63 kg

DRUGS (3)
  1. ETODOLAC [Suspect]
     Active Substance: ETODOLAC
     Indication: Inflammation
     Dosage: 1 TABLET TWICE A DAY ORAL
     Route: 048
     Dates: start: 20240605, end: 20240609
  2. SIMVASTATIN [Concomitant]
     Active Substance: SIMVASTATIN
  3. CALCIUM [Concomitant]
     Active Substance: CALCIUM

REACTIONS (1)
  - Alopecia [None]

NARRATIVE: CASE EVENT DATE: 20240605
